APPROVED DRUG PRODUCT: MD-50
Active Ingredient: DIATRIZOATE SODIUM
Strength: 50%
Dosage Form/Route: INJECTABLE;INJECTION
Application: A087075 | Product #001
Applicant: MALLINCKRODT INC
Approved: Approved Prior to Jan 1, 1982 | RLD: No | RS: No | Type: DISCN